FAERS Safety Report 5505976-7 (Version None)
Quarter: 2007Q4

REPORT INFORMATION
  Report Type: 
  Country: None (occurrence: None)
  Receive Date: 20071105
  Receipt Date: 20071102
  Transmission Date: 20080405
  Serious: Yes (Death, Other)
  Sender: FDA-Public Use
  Company Number: PHBS2006IE17693

PATIENT
  Age: 21 Year
  Sex: Male

DRUGS (9)
  1. AZATHIOPRINE [Concomitant]
  2. METHOTREXATE [Concomitant]
     Dosage: 20 MG, QW
  3. PREDNISOLONE [Concomitant]
     Dosage: 20 MG/D
  4. DICLOFENAC SODIUM [Concomitant]
     Dosage: 75 MG, BID
  5. CYCLOSPORINE [Suspect]
     Indication: PSORIATIC ARTHROPATHY
     Dosage: 2.5 MG/KG/DAY
  6. CYCLOSPORINE [Suspect]
     Dosage: 3.5 MG/KG/DAY
  7. CYCLOSPORINE [Suspect]
     Dosage: 100 MG, BID
  8. CYCLOSPORINE [Suspect]
     Dosage: 100 MG, QD
  9. CYCLOSPORINE [Suspect]
     Dosage: 100 MG, BID

REACTIONS (20)
  - BLOOD ALBUMIN DECREASED [None]
  - BLOOD CREATININE INCREASED [None]
  - CARDIAC AMYLOIDOSIS [None]
  - CARDIAC FAILURE [None]
  - CELLULITIS [None]
  - DIALYSIS [None]
  - GLOMERULAR FILTRATION RATE DECREASED [None]
  - HYPERTENSION [None]
  - LOBAR PNEUMONIA [None]
  - LYMPHOPENIA [None]
  - NEPHROTIC SYNDROME [None]
  - NEUTROPHIL COUNT INCREASED [None]
  - PITTING OEDEMA [None]
  - PNEUMOCOCCAL SEPSIS [None]
  - PROTEINURIA [None]
  - PSORIATIC ARTHROPATHY [None]
  - RENAL AMYLOIDOSIS [None]
  - SECONDARY AMYLOIDOSIS [None]
  - SEPSIS [None]
  - WHITE BLOOD CELL COUNT INCREASED [None]
